FAERS Safety Report 16803756 (Version 1)
Quarter: 2019Q3

REPORT INFORMATION
  Report Type: Spontaneous
  Country: US (occurrence: US)
  Receive Date: 20190913
  Receipt Date: 20190913
  Transmission Date: 20191005
  Serious: No
  Sender: FDA-Public Use
  Company Number: US-APOTEX-2019AP020785

PATIENT
  Sex: Male
  Weight: 95 kg

DRUGS (1)
  1. CLARISPRAY NASAL ALLERGY [Suspect]
     Active Substance: FLUTICASONE PROPIONATE
     Indication: SEASONAL ALLERGY
     Dosage: UNK, QD (1 SQUIRT PER NOSTRILS)
     Route: 045

REACTIONS (3)
  - No adverse event [Unknown]
  - Expired product administered [Unknown]
  - Underdose [Unknown]
